FAERS Safety Report 22705395 (Version 2)
Quarter: 2023Q4

REPORT INFORMATION
  Report Type: Report from Study
  Country: FR (occurrence: None)
  Receive Date: 20230714
  Receipt Date: 20231130
  Transmission Date: 20240110
  Serious: Yes (Hospitalization)
  Sender: FDA-Public Use
  Company Number: FR-ROCHE-3009683

PATIENT
  Age: 57 Year
  Sex: Female
  Weight: 97 kg

DRUGS (10)
  1. MOSUNETUZUMAB [Suspect]
     Active Substance: MOSUNETUZUMAB
     Indication: Follicular lymphoma
     Dosage: DATE OF MOST RECENT DOSE 17-DEC-2021 (30 MG)?DATE OF MOST RECENT DOSE OF STUDY DRUG PRIOR TO SAE 17-
     Route: 058
     Dates: start: 20211102
  2. LENALIDOMIDE [Suspect]
     Active Substance: LENALIDOMIDE
     Indication: Follicular lymphoma
     Dosage: DATE OF MOST RECENT DOSE 06-JAN-2022 (20 MG)
     Route: 048
     Dates: start: 20211217
  3. KETODERM (FRANCE) [Concomitant]
     Indication: Psoriasis
     Dosage: 1 OTHER
     Route: 062
     Dates: start: 20211118, end: 20211126
  4. RETINOL [Concomitant]
     Active Substance: RETINOL
     Indication: Keratitis
     Dosage: 1 AMPULE
     Route: 047
     Dates: start: 20211118, end: 20211217
  5. AUGMENTIN [Concomitant]
     Active Substance: AMOXICILLIN\CLAVULANATE POTASSIUM
     Indication: Bronchitis
     Route: 065
     Dates: start: 20220408, end: 20220421
  6. POLARAMINE [Concomitant]
     Active Substance: DEXCHLORPHENIRAMINE MALEATE
     Indication: Premedication
     Route: 042
     Dates: start: 20211102, end: 20221103
  7. PERFALGAN [Concomitant]
     Active Substance: ACETAMINOPHEN
     Indication: Premedication
     Route: 042
     Dates: start: 20211102, end: 20221103
  8. SORIATANE [Concomitant]
     Active Substance: ACITRETIN
     Indication: Psoriasis
     Route: 048
     Dates: start: 20220125, end: 20220518
  9. SORIATANE [Concomitant]
     Active Substance: ACITRETIN
     Route: 048
     Dates: start: 20230519
  10. FILGRASTIM [Concomitant]
     Active Substance: FILGRASTIM
     Indication: Neutropenia
     Route: 058
     Dates: start: 20220628, end: 20220630

REACTIONS (1)
  - Dermatitis psoriasiform [Not Recovered/Not Resolved]

NARRATIVE: CASE EVENT DATE: 20211114
